FAERS Safety Report 7397520-7 (Version None)
Quarter: 2011Q2

REPORT INFORMATION
  Report Type: 
  Country: None (occurrence: None)
  Receive Date: 20110406
  Receipt Date: 20110325
  Transmission Date: 20111010
  Serious: Yes (Death)
  Sender: FDA-Public Use
  Company Number: US-CELGENEUS-163-20785-11030288

PATIENT
  Sex: Male
  Weight: 78 kg

DRUGS (1)
  1. THALOMID [Suspect]
     Dosage: 50 MILLIGRAM
     Route: 048
     Dates: start: 20080805, end: 20110101

REACTIONS (2)
  - CARDIOMYOPATHY [None]
  - CORONARY ARTERY DISEASE [None]
